FAERS Safety Report 18430926 (Version 1)
Quarter: 2020Q4

REPORT INFORMATION
  Report Type: Spontaneous
  Country: US (occurrence: US)
  Receive Date: 20201027
  Receipt Date: 20201027
  Transmission Date: 20210114
  Serious: Yes (Hospitalization)
  Sender: FDA-Public Use
  Company Number: None

PATIENT
  Age: 92 Year
  Sex: Male

DRUGS (1)
  1. IMATINIB MESYLATE 400 MG TEVA PHARMACEUTICALS USA [Suspect]
     Active Substance: IMATINIB MESYLATE
     Indication: GASTROINTESTINAL DISORDER
     Route: 048
     Dates: start: 20200916

REACTIONS (3)
  - Syncope [None]
  - Pneumonia [None]
  - Cough [None]

NARRATIVE: CASE EVENT DATE: 20201014
